FAERS Safety Report 6349462-3 (Version None)
Quarter: 2009Q3

REPORT INFORMATION
  Report Type: 
  Country: None (occurrence: None)
  Receive Date: 20090911
  Receipt Date: 20090903
  Transmission Date: 20100115
  Serious: Yes (Other)
  Sender: FDA-Public Use
  Company Number: US-ABBOTT-09P-163-0595710-00

PATIENT
  Sex: Female
  Weight: 63.56 kg

DRUGS (3)
  1. SYNTHROID [Suspect]
     Indication: HYPOTHYROIDISM
     Route: 048
  2. CYTOMEL [Suspect]
     Indication: HYPOTHYROIDISM
     Dosage: UNKNOWN
     Route: 048
     Dates: start: 20081201, end: 20090801
  3. ZOMETA [Suspect]
     Indication: BONE DISORDER
     Dosage: UNKNOWN
     Route: 042
     Dates: start: 20070101, end: 20070101

REACTIONS (5)
  - ABDOMINAL PAIN [None]
  - BREAST CANCER METASTATIC [None]
  - NAUSEA [None]
  - OSTEONECROSIS [None]
  - PAIN IN EXTREMITY [None]
